FAERS Safety Report 15346200 (Version 2)
Quarter: 2018Q4

REPORT INFORMATION
  Report Type: Spontaneous
  Country: FR (occurrence: FR)
  Receive Date: 20180904
  Receipt Date: 20181130
  Transmission Date: 20190204
  Serious: Yes (Hospitalization)
  Sender: FDA-Public Use
  Company Number: FR-ROCHE-2178298

PATIENT
  Age: 80 Year
  Sex: Male
  Weight: 64 kg

DRUGS (3)
  1. MABTHERA [Suspect]
     Active Substance: RITUXIMAB
     Route: 041
     Dates: start: 20180620, end: 20180620
  2. TEGELINE [Suspect]
     Active Substance: HUMAN IMMUNOGLOBULIN G
     Indication: MUSCULAR WEAKNESS
     Dosage: 30 G SUR 6 HEURES
     Route: 041
     Dates: start: 20180525, end: 20180525
  3. MABTHERA [Suspect]
     Active Substance: RITUXIMAB
     Indication: MUSCULAR WEAKNESS
     Route: 041
     Dates: start: 20180704, end: 20180704

REACTIONS (2)
  - Troponin increased [Recovered/Resolved]
  - Acute coronary syndrome [Recovered/Resolved]

NARRATIVE: CASE EVENT DATE: 20180705
